FAERS Safety Report 4534304-9 (Version None)
Quarter: 2004Q4

REPORT INFORMATION
  Report Type: 
  Country: None (occurrence: None)
  Receive Date: 20041221
  Receipt Date: 20041221
  Transmission Date: 20050328
  Serious: No
  Sender: FDA-Public Use
  Company Number: None

PATIENT
  Age: 72 Year
  Sex: Female

DRUGS (2)
  1. OXACILLIN [Suspect]
     Indication: CATHETER SEPSIS
     Dosage: 2 GM IVPB Q 4 HRS
     Route: 042
     Dates: start: 20041123, end: 20041124
  2. OXACILLIN [Suspect]
     Indication: STAPHYLOCOCCAL SEPSIS
     Dosage: 2 GM IVPB Q 4 HRS
     Route: 042
     Dates: start: 20041123, end: 20041124

REACTIONS (1)
  - NEPHRITIS INTERSTITIAL [None]
